FAERS Safety Report 20035618 (Version 1)
Quarter: 2021Q4

REPORT INFORMATION
  Report Type: Spontaneous
  Country: US (occurrence: US)
  Receive Date: 20211104
  Receipt Date: 20211104
  Transmission Date: 20220303
  Serious: Yes (Hospitalization)
  Sender: FDA-Public Use
  Company Number: US-TEVA-2021-US-1971412

PATIENT
  Age: 53 Year
  Sex: Female
  Weight: 68.95 kg

DRUGS (13)
  1. AUSTEDO [Suspect]
     Active Substance: DEUTETRABENAZINE
     Indication: Tardive dyskinesia
     Route: 065
     Dates: start: 2020
  2. ACETAMINOPHEN\HYDROCODONE [Concomitant]
     Active Substance: ACETAMINOPHEN\HYDROCODONE
     Indication: Trigeminal neuralgia
     Dosage: 10 MG-325 MG
  3. VRAYLAR [Concomitant]
     Active Substance: CARIPRAZINE
     Dosage: ONCE DAILY
  4. ITRACONAZOLE [Concomitant]
     Active Substance: ITRACONAZOLE
     Dosage: TAKE 400 MG A DAY
  5. TRAZODONE [Concomitant]
     Active Substance: TRAZODONE HYDROCHLORIDE
     Dosage: ONCE NIGHTLY
  6. LUNESTA [Concomitant]
     Active Substance: ESZOPICLONE
     Dosage: AT NIGHT
  7. CRESTOR [Concomitant]
     Active Substance: ROSUVASTATIN CALCIUM
     Dosage: ONCE DAILY
  8. XOLAIR [Concomitant]
     Active Substance: OMALIZUMAB
     Indication: Asthma
  9. EMGALITY [Concomitant]
     Active Substance: GALCANEZUMAB-GNLM
     Indication: Trigeminal neuralgia
  10. BOTOX [Concomitant]
     Active Substance: ONABOTULINUMTOXINA
     Indication: Trigeminal neuralgia
     Dosage: 150 UNITS
  11. OZEMPIC [Concomitant]
     Active Substance: SEMAGLUTIDE
     Indication: Diabetes mellitus
  12. XYZAL [Concomitant]
     Active Substance: LEVOCETIRIZINE DIHYDROCHLORIDE
     Dosage: 1 TABLET AT NIGHT
  13. SINGULAIR [Concomitant]
     Active Substance: MONTELUKAST SODIUM
     Indication: Asthma
     Dosage: ONCE DAILY

REACTIONS (5)
  - Pneumonia [Recovered/Resolved]
  - Urinary tract infection [Recovered/Resolved]
  - Candida infection [Not Recovered/Not Resolved]
  - Tongue blistering [Not Recovered/Not Resolved]
  - Blood test abnormal [Unknown]

NARRATIVE: CASE EVENT DATE: 20210501
